FAERS Safety Report 24575746 (Version 2)
Quarter: 2024Q4

REPORT INFORMATION
  Report Type: Spontaneous
  Country: US (occurrence: US)
  Receive Date: 20241104
  Receipt Date: 20241106
  Transmission Date: 20250115
  Serious: No
  Sender: NOVARTIS
  Company Number: US-002147023-NVSC2024US212661

PATIENT
  Age: 40 Year

DRUGS (1)
  1. VIJOICE [Suspect]
     Active Substance: ALPELISIB
     Indication: PIK3CA related overgrowth spectrum
     Dosage: 250 MG/KG, QD
     Route: 048

REACTIONS (2)
  - Hyperglycaemia [Not Recovered/Not Resolved]
  - Off label use [Unknown]
